FAERS Safety Report 26160293 (Version 1)
Quarter: 2025Q4

REPORT INFORMATION
  Report Type: Spontaneous
  Country: AU (occurrence: AU)
  Receive Date: 20251216
  Receipt Date: 20251216
  Transmission Date: 20260118
  Serious: Yes (Other)
  Sender: ACCORD
  Company Number: None

PATIENT
  Age: 47 Year
  Sex: Female

DRUGS (11)
  1. BORTEZOMIB [Suspect]
     Active Substance: BORTEZOMIB
     Indication: Product used for unknown indication
  2. DARATUMUMAB [Suspect]
     Active Substance: DARATUMUMAB
     Indication: Product used for unknown indication
  3. DEXAMETHASONE [Suspect]
     Active Substance: DEXAMETHASONE
     Indication: Product used for unknown indication
  4. HUMAN IMMUNOGLOBULIN G [Suspect]
     Active Substance: HUMAN IMMUNOGLOBULIN G
     Indication: Product used for unknown indication
  5. RITUXIMAB [Suspect]
     Active Substance: RITUXIMAB
     Indication: Product used for unknown indication
  6. XARELTO [Suspect]
     Active Substance: RIVAROXABAN
     Indication: Product used for unknown indication
  7. HEPARIN [Concomitant]
     Active Substance: HEPARIN SODIUM
  8. DABIGATRAN ETEXILATE [Concomitant]
     Active Substance: DABIGATRAN ETEXILATE
  9. HEPARIN SODIUM [Concomitant]
     Active Substance: HEPARIN SODIUM
  10. IBRUTINIB [Concomitant]
     Active Substance: IBRUTINIB
  11. RIVAROXABAN [Concomitant]
     Active Substance: RIVAROXABAN

REACTIONS (10)
  - Cerebral venous sinus thrombosis [Unknown]
  - Deep vein thrombosis [Unknown]
  - Drug ineffective for unapproved indication [Unknown]
  - Monoclonal gammopathy [Unknown]
  - Off label use [Unknown]
  - Plasma cell myeloma [Unknown]
  - Pulmonary embolism [Unknown]
  - Renal vein thrombosis [Unknown]
  - Thrombocytopenia [Unknown]
  - Thrombosis [Unknown]
